FAERS Safety Report 4624864-1 (Version None)
Quarter: 2005Q2

REPORT INFORMATION
  Report Type: 
  Country: None (occurrence: None)
  Receive Date: 20050325
  Receipt Date: 20050107
  Transmission Date: 20051028
  Serious: No
  Sender: FDA-Public Use
  Company Number: USA050187700

PATIENT
  Age: 73 Year
  Sex: Female
  Weight: 52 kg

DRUGS (3)
  1. FORTEO [Suspect]
     Indication: OSTEOPOROSIS
     Dosage: 20 UG
     Dates: start: 20030101, end: 20030101
  2. PEPCID [Concomitant]
  3. ZANTAC [Concomitant]

REACTIONS (4)
  - DISCOMFORT [None]
  - FEELING ABNORMAL [None]
  - GASTRITIS [None]
  - IRRITABLE BOWEL SYNDROME [None]
